FAERS Safety Report 7204109 (Version 4)
Quarter: 2013Q3

REPORT INFORMATION
  Report Type: Spontaneous
  Country: JP (occurrence: JP)
  Receive Date: 20091208
  Receipt Date: 20130709
  Transmission Date: 20140515
  Serious: Yes (Other)
  Sender: FDA-Public Use
  Company Number: JP-SANOFI-AVENTIS-2009SA004622

PATIENT
  Age: 50 Year
  Sex: Female

DRUGS (7)
  1. TAXOTERE [Suspect]
     Indication: MALIGNANT ASCITES
     Dosage: RECEIVED ON DAY 1 AND 7 EVERY 28 DAYS AND A TOTAL OF 2 COURSES ADMINISTERED.
     Route: 065
  2. TAXOTERE [Suspect]
     Indication: MALIGNANT ASCITES
     Dosage: A TOTAL OF 13 COURSES WERE ADMINISTERED AND RECEIVED ON DAY 1 EVERY 28 DAYS.
     Route: 065
     Dates: start: 200804
  3. CISPLATIN [Suspect]
     Indication: MALIGNANT ASCITES
     Route: 065
     Dates: start: 200905
  4. TS 1 [Suspect]
     Indication: MALIGNANT ASCITES
     Dosage: TOTAL 2 CYCLES, RECEIVED FOR 14 DAYS IN 28 DAY CYCLE, 2 WEEKS ADMINISTRATION AND 2 WEEKS REST
     Route: 065
  5. TS 1 [Suspect]
     Indication: MALIGNANT ASCITES
     Dosage: TOTAL 13 CYCLES WERE ADMINISTERED.?RECEIVED FOR 14 DAYS IN A 28 DAY CYCLE.
     Route: 065
     Dates: start: 200804
  6. CPT-11 [Suspect]
     Indication: MALIGNANT ASCITES
     Route: 065
     Dates: start: 200905
  7. TEGAFUR/URACIL [Concomitant]
     Indication: MALIGNANT ASCITES

REACTIONS (4)
  - Vision blurred [Recovered/Resolved]
  - Decreased appetite [Unknown]
  - Diarrhoea [Unknown]
  - Stomatitis [Unknown]
